FAERS Safety Report 8200879-1 (Version None)
Quarter: 2012Q1

REPORT INFORMATION
  Report Type: 
  Country: None (occurrence: None)
  Receive Date: 20120312
  Receipt Date: 20110525
  Transmission Date: 20120608
  Serious: No
  Sender: FDA-Public Use
  Company Number: US-ABBOTT-11P-163-0720905-00

PATIENT
  Sex: Female
  Weight: 59.02 kg

DRUGS (2)
  1. LUPRON DEPOT [Suspect]
     Indication: ENDOMETRIOSIS
     Dates: start: 20101230
  2. SEASONIQUE [Suspect]
     Indication: PRODUCT USED FOR UNKNOWN INDICATION
     Dates: start: 20110201, end: 20110301

REACTIONS (23)
  - NAUSEA [None]
  - MUSCULOSKELETAL DISCOMFORT [None]
  - HYPOAESTHESIA [None]
  - DEPRESSION [None]
  - MIGRAINE [None]
  - PAIN [None]
  - FATIGUE [None]
  - MYALGIA [None]
  - BONE PAIN [None]
  - RENAL PAIN [None]
  - DIZZINESS [None]
  - MIDDLE EAR EFFUSION [None]
  - MUSCULAR WEAKNESS [None]
  - PARAESTHESIA [None]
  - ARTHRALGIA [None]
  - CHEST PAIN [None]
  - NASOPHARYNGITIS [None]
  - EAR INFECTION [None]
  - VITAMIN D DEFICIENCY [None]
  - HOT FLUSH [None]
  - FLUSHING [None]
  - VAGINAL HAEMORRHAGE [None]
  - SENSORY DISTURBANCE [None]
